FAERS Safety Report 7209829-8 (Version None)
Quarter: 2011Q1

REPORT INFORMATION
  Report Type: 
  Country: None (occurrence: None)
  Receive Date: 20110104
  Receipt Date: 20101230
  Transmission Date: 20110831
  Serious: Yes (Death, Hospitalization)
  Sender: FDA-Public Use
  Company Number: US-ASTRAZENECA-2010SE61455

PATIENT
  Age: 88 Year
  Sex: Male

DRUGS (4)
  1. METFORMIN [Concomitant]
  2. SEROQUEL [Suspect]
     Route: 048
  3. SEROQUEL [Suspect]
     Route: 048
  4. GLUCOPHAGE [Concomitant]

REACTIONS (2)
  - DEMENTIA [None]
  - FALL [None]
